FAERS Safety Report 21364031 (Version 1)
Quarter: 2022Q3

REPORT INFORMATION
  Report Type: Spontaneous
  Country: US (occurrence: US)
  Receive Date: 20220922
  Receipt Date: 20220922
  Transmission Date: 20221026
  Serious: Yes (Hospitalization, Other)
  Sender: FDA-Public Use
  Company Number: US-PROCTER_AND_GAMBLE-GS22076988

PATIENT

DRUGS (1)
  1. CREST PRO-HEALTH RINSE [Suspect]
     Active Substance: CETYLPYRIDINIUM CHLORIDE
     Indication: Toothache
     Dosage: CONTINUED USING A LITTLE BIT
     Route: 002
     Dates: start: 20220719

REACTIONS (15)
  - Haematemesis [Unknown]
  - Burning mouth syndrome [Unknown]
  - Peptic ulcer [Unknown]
  - Gastric haemorrhage [Unknown]
  - Intentional product misuse [Unknown]
  - Oral discomfort [Unknown]
  - Oral pain [Unknown]
  - Gingival pain [Unknown]
  - Glossodynia [Unknown]
  - Lip pain [Unknown]
  - Vomiting [Unknown]
  - Haematochezia [Unknown]
  - Dizziness [Unknown]
  - Hyperhidrosis [Unknown]
  - Abdominal distension [Unknown]

NARRATIVE: CASE EVENT DATE: 20220701
